FAERS Safety Report 7545892-2 (Version None)
Quarter: 2011Q2

REPORT INFORMATION
  Report Type: 
  Country: None (occurrence: None)
  Receive Date: 20110613
  Receipt Date: 20110613
  Transmission Date: 20111010
  Serious: Yes (Life-Threatening, Other)
  Sender: FDA-Public Use
  Company Number: None

PATIENT
  Age: 48 Year
  Sex: Female
  Weight: 69.4003 kg

DRUGS (1)
  1. CHORIONIC GONADOTROPIN [Suspect]

REACTIONS (4)
  - PRODUCT CONTAMINATION WITH BODY FLUID [None]
  - BLOOD TEST ABNORMAL [None]
  - POOR QUALITY DRUG ADMINISTERED [None]
  - BLOOD DISORDER [None]
